FAERS Safety Report 23919690 (Version 3)
Quarter: 2024Q2

REPORT INFORMATION
  Report Type: Report from Study
  Country: IT (occurrence: IT)
  Receive Date: 20240530
  Receipt Date: 20240625
  Transmission Date: 20240716
  Serious: Yes (Death, Hospitalization, Other)
  Sender: FDA-Public Use
  Company Number: IT-IPSEN Group, Research and Development-2024-08318

PATIENT
  Age: 65 Year
  Sex: Female

DRUGS (3)
  1. CABOMETYX [Suspect]
     Active Substance: CABOZANTINIB S-MALATE
     Indication: Renal cell carcinoma
     Dosage: UNK, QD
     Route: 065
     Dates: start: 2024, end: 2024
  2. NIVOLUMAB [Suspect]
     Active Substance: NIVOLUMAB
     Indication: Renal cell carcinoma
     Dosage: UNK, QD
     Dates: start: 2024, end: 2024
  3. TAPAZOLE [Concomitant]
     Active Substance: METHIMAZOLE
     Indication: Thyroiditis
     Dosage: UNK
     Dates: end: 2018

REACTIONS (2)
  - Cerebellar stroke [Fatal]
  - General physical health deterioration [Unknown]

NARRATIVE: CASE EVENT DATE: 20240201
